FAERS Safety Report 5169034-6 (Version None)
Quarter: 2006Q4

REPORT INFORMATION
  Report Type: 
  Country: None (occurrence: None)
  Receive Date: 20061204
  Receipt Date: 20061122
  Transmission Date: 20070319
  Serious: Yes (Other)
  Sender: FDA-Public Use
  Company Number: 2006146698

PATIENT
  Age: 33 Year
  Sex: Female

DRUGS (2)
  1. DEPO-PROVERA [Suspect]
     Dosage: SEE IMAGE
     Route: 030
     Dates: start: 20020101, end: 20020101
  2. DEPO-PROVERA [Suspect]
     Dosage: SEE IMAGE
     Route: 030
     Dates: start: 20060301, end: 20060301

REACTIONS (2)
  - FEMUR FRACTURE [None]
  - OSTEOPOROSIS [None]
